FAERS Safety Report 5897448-5 (Version None)
Quarter: 2008Q3

REPORT INFORMATION
  Report Type: 
  Country: None (occurrence: None)
  Receive Date: 20080915
  Receipt Date: 20080321
  Transmission Date: 20090109
  Serious: Yes (Other)
  Sender: FDA-Public Use
  Company Number: US-WYE-H03252708

PATIENT
  Age: 6 Year
  Sex: Male

DRUGS (1)
  1. PHOSPHOLINE IODIDE [Suspect]
     Indication: STRABISMUS
     Dosage: 0.125%-1 DROP IN EACH EYE, INTRAOCULAR
     Route: 031
     Dates: start: 20080101, end: 20080101

REACTIONS (2)
  - MYODESOPSIA [None]
  - RETINAL DISORDER [None]
